FAERS Safety Report 5889468-1 (Version None)
Quarter: 2008Q3

REPORT INFORMATION
  Report Type: 
  Country: None (occurrence: None)
  Receive Date: 20080919
  Receipt Date: 20080911
  Transmission Date: 20090109
  Serious: Yes (Hospitalization)
  Sender: FDA-Public Use
  Company Number: US-GENENTECH-265367

PATIENT
  Sex: Male

DRUGS (4)
  1. BEVACIZUMAB [Suspect]
     Indication: ANAPLASTIC ASTROCYTOMA
     Dosage: 10 MG/KG, QOW
     Route: 042
     Dates: start: 20080324, end: 20080504
  2. ERLOTINIB [Suspect]
     Indication: ANAPLASTIC ASTROCYTOMA
     Dosage: 200 MG, QD
     Route: 048
     Dates: start: 20080324
  3. KEPPRA [Concomitant]
     Indication: CONVULSION
     Dosage: 1500 MG, BID
     Route: 048
  4. ZOFRAN [Concomitant]
     Indication: PROPHYLAXIS OF NAUSEA AND VOMITING
     Dosage: 8 MG, PRN
     Route: 048

REACTIONS (2)
  - DUODENAL ULCER [None]
  - GASTRIC ULCER [None]
